FAERS Safety Report 5303335-3 (Version None)
Quarter: 2007Q2

REPORT INFORMATION
  Report Type: 
  Country: None (occurrence: None)
  Receive Date: 20070420
  Receipt Date: 20070417
  Transmission Date: 20071010
  Serious: Yes (Hospitalization, Other)
  Sender: FDA-Public Use
  Company Number: US-MERCK-0704USA03520

PATIENT
  Age: 73 Year
  Sex: Male

DRUGS (10)
  1. DECADRON [Suspect]
     Route: 048
  2. REVLIMID [Suspect]
     Indication: MULTIPLE MYELOMA
     Route: 048
     Dates: start: 20061227
  3. REVLIMID [Suspect]
     Route: 048
     Dates: start: 20061017, end: 20061025
  4. FOLIC ACID [Concomitant]
     Route: 065
  5. NEXIUM [Concomitant]
     Route: 065
  6. LASIX [Concomitant]
     Route: 065
  7. OXYCONTIN [Concomitant]
     Route: 065
  8. [THERAPY UNSPECIFIED] [Concomitant]
     Indication: THYROID DISORDER
     Route: 065
  9. NEURONTIN [Concomitant]
     Route: 065
  10. COUMADIN [Concomitant]
     Route: 065

REACTIONS (17)
  - ABDOMINAL PAIN [None]
  - ATRIAL FIBRILLATION [None]
  - CARDIAC FAILURE CONGESTIVE [None]
  - DRY MOUTH [None]
  - DYSPNOEA [None]
  - FATIGUE [None]
  - GENERAL PHYSICAL HEALTH DETERIORATION [None]
  - GINGIVAL PAIN [None]
  - HAEMOGLOBIN DECREASED [None]
  - HYPOTRICHOSIS [None]
  - MUSCULAR WEAKNESS [None]
  - PNEUMONIA [None]
  - RED BLOOD CELL COUNT DECREASED [None]
  - REFLUX GASTRITIS [None]
  - SEPSIS [None]
  - TREMOR [None]
  - VISUAL DISTURBANCE [None]
